FAERS Safety Report 19203502 (Version 2)
Quarter: 2021Q2

REPORT INFORMATION
  Report Type: Spontaneous
  Country: IT (occurrence: IT)
  Receive Date: 20210503
  Receipt Date: 20210520
  Transmission Date: 20210717
  Serious: Yes (Hospitalization, Other)
  Sender: FDA-Public Use
  Company Number: IT-AUROBINDO-AUR-APL-2021-018501

PATIENT
  Age: 68 Year
  Sex: Female

DRUGS (3)
  1. LISINOPRIL. [Concomitant]
     Active Substance: LISINOPRIL
     Indication: PRODUCT USED FOR UNKNOWN INDICATION
     Dosage: UNK
     Route: 065
  2. METFORMIN [Suspect]
     Active Substance: METFORMIN HYDROCHLORIDE
     Indication: DIABETES MELLITUS
     Dosage: UNK
     Route: 065
     Dates: start: 20210101, end: 20210223
  3. ATORVASTATIN [Concomitant]
     Active Substance: ATORVASTATIN
     Indication: PRODUCT USED FOR UNKNOWN INDICATION
     Dosage: UNK
     Route: 065

REACTIONS (11)
  - Cardiogenic shock [Not Recovered/Not Resolved]
  - Hypotension [Unknown]
  - Urine flow decreased [Unknown]
  - Anuria [Unknown]
  - Lactic acidosis [Not Recovered/Not Resolved]
  - Heart rate increased [Unknown]
  - Vomiting [Unknown]
  - Decreased appetite [Unknown]
  - Acute kidney injury [Unknown]
  - Depressed level of consciousness [Unknown]
  - Pulseless electrical activity [Unknown]

NARRATIVE: CASE EVENT DATE: 20210223
